FAERS Safety Report 13382663 (Version 1)
Quarter: 2017Q1

REPORT INFORMATION
  Report Type: Spontaneous
  Country: US (occurrence: US)
  Receive Date: 20170329
  Receipt Date: 20170329
  Transmission Date: 20170429
  Serious: No
  Sender: FDA-Public Use
  Company Number: US-009507513-1703USA001607

PATIENT
  Age: 26 Year
  Sex: Female

DRUGS (1)
  1. NEXPLANON [Suspect]
     Active Substance: ETONOGESTREL
     Indication: CONTRACEPTION
     Dosage: 68 MG, 1 IMPLANT, UNK
     Route: 059
     Dates: start: 201610, end: 20170301

REACTIONS (2)
  - Implant site irritation [Recovered/Resolved]
  - Device breakage [Recovered/Resolved]
